FAERS Safety Report 12708600 (Version 4)
Quarter: 2024Q3

REPORT INFORMATION
  Report Type: Spontaneous
  Country: US (occurrence: US)
  Receive Date: 20160901
  Receipt Date: 20240702
  Transmission Date: 20241017
  Serious: Yes (Other)
  Sender: PFIZER
  Company Number: US-PFIZER INC-2016409335

PATIENT
  Age: 35 Year
  Sex: Male

DRUGS (10)
  1. DAPTOMYCIN [Suspect]
     Active Substance: DAPTOMYCIN
     Indication: Fungal infection
     Dosage: UNK
     Route: 065
  2. CRESEMBA [Suspect]
     Active Substance: ISAVUCONAZONIUM SULFATE
     Indication: Fungal infection
     Dosage: UNK
     Route: 042
     Dates: start: 20160720
  3. CRESEMBA [Suspect]
     Active Substance: ISAVUCONAZONIUM SULFATE
     Indication: Systemic mycosis
  4. MEROPENEM [Suspect]
     Active Substance: MEROPENEM
     Indication: Fungal infection
     Dosage: UNK
     Route: 065
     Dates: start: 20160720
  5. AMBISOME [Suspect]
     Active Substance: AMPHOTERICIN B
     Indication: Fungal infection
     Dosage: UNK
     Route: 065
  6. AMBISOME [Suspect]
     Active Substance: AMPHOTERICIN B
     Indication: Systemic mycosis
  7. TELAVANCIN [Suspect]
     Active Substance: TELAVANCIN
     Indication: Fungal infection
     Dosage: UNK
     Route: 065
  8. TELAVANCIN [Suspect]
     Active Substance: TELAVANCIN
     Indication: Systemic mycosis
  9. POLYMYXIN B [Suspect]
     Active Substance: POLYMYXIN B
     Indication: Fungal infection
     Dosage: UNK
     Route: 065
  10. POLYMYXIN B [Suspect]
     Active Substance: POLYMYXIN B
     Indication: Systemic mycosis

REACTIONS (4)
  - Off label use [Not Recovered/Not Resolved]
  - Rhabdomyolysis [Not Recovered/Not Resolved]
  - Blood creatine phosphokinase increased [Unknown]
  - Renal impairment [Unknown]

NARRATIVE: CASE EVENT DATE: 20160701
